FAERS Safety Report 10809141 (Version 1)
Quarter: 2015Q1

REPORT INFORMATION
  Report Type: Spontaneous
  Country: US (occurrence: None)
  Receive Date: 20150212
  Receipt Date: 20150212
  Transmission Date: 20150721
  Serious: No
  Sender: FDA-Public Use
  Company Number: None

PATIENT
  Sex: Male
  Weight: 88.6 kg

DRUGS (7)
  1. ASPIRIN. [Concomitant]
     Active Substance: ASPIRIN
  2. TAMSULOSIN [Concomitant]
     Active Substance: TAMSULOSIN
  3. HARVONI [Suspect]
     Active Substance: LEDIPASVIR\SOFOSBUVIR
     Indication: HEPATITIS
     Dosage: 1 TABLET QD PO
     Route: 048
     Dates: start: 20150106
  4. FLUOXETINE [Concomitant]
     Active Substance: FLUOXETINE\FLUOXETINE HYDROCHLORIDE
  5. METOPROLOL [Concomitant]
     Active Substance: METOPROLOL
  6. LOSARTAN/HET [Concomitant]
  7. CLONAZEPAM. [Concomitant]
     Active Substance: CLONAZEPAM

REACTIONS (2)
  - Fatigue [None]
  - Asthenia [None]
